FAERS Safety Report 6741645-3 (Version None)
Quarter: 2010Q2

REPORT INFORMATION
  Report Type: 
  Country: None (occurrence: None)
  Receive Date: 20100526
  Receipt Date: 20100517
  Transmission Date: 20101027
  Serious: Yes (Other)
  Sender: FDA-Public Use
  Company Number: CA-AMGEN-KDL381820

PATIENT
  Sex: Male
  Weight: 57.7 kg

DRUGS (4)
  1. ENBREL [Suspect]
     Indication: RHEUMATOID ARTHRITIS
     Route: 058
     Dates: start: 20091209, end: 20100303
  2. LOSEC I.V. [Concomitant]
  3. NAPROXEN [Concomitant]
  4. PREDNISONE TAB [Concomitant]

REACTIONS (2)
  - DIZZINESS [None]
  - THERAPEUTIC RESPONSE DECREASED [None]
